FAERS Safety Report 21207392 (Version 1)
Quarter: 2022Q3

REPORT INFORMATION
  Report Type: Spontaneous
  Country: US (occurrence: US)
  Receive Date: 20220812
  Receipt Date: 20220812
  Transmission Date: 20221027
  Serious: No
  Sender: FDA-Public Use
  Company Number: US-REGENERON PHARMACEUTICALS, INC.-2022-26324

PATIENT
  Sex: Male

DRUGS (1)
  1. EVKEEZA [Suspect]
     Active Substance: EVINACUMAB-DGNB
     Indication: Product used for unknown indication
     Dosage: 6.9 ML, QM
     Route: 042
     Dates: start: 2021

REACTIONS (1)
  - Hepatic enzyme increased [Unknown]
